FAERS Safety Report 8557131-4 (Version None)
Quarter: 2012Q3

REPORT INFORMATION
  Report Type: 
  Country: None (occurrence: None)
  Receive Date: 20120801
  Receipt Date: 20120725
  Transmission Date: 20120928
  Serious: Yes (Other)
  Sender: FDA-Public Use
  Company Number: US-ABBOTT-12P-163-0950959-00

PATIENT
  Sex: Female
  Weight: 94.432 kg

DRUGS (2)
  1. HUMIRA [Suspect]
     Indication: PSORIASIS
     Dates: start: 20091001, end: 20100901
  2. ENBREL [Suspect]
     Indication: PRODUCT USED FOR UNKNOWN INDICATION

REACTIONS (4)
  - LYMPHOMA [None]
  - ENDOMETRIAL CANCER [None]
  - POSTMENOPAUSAL HAEMORRHAGE [None]
  - LYMPHADENOPATHY [None]
